FAERS Safety Report 19677414 (Version 2)
Quarter: 2021Q3

REPORT INFORMATION
  Report Type: Report from Study
  Country: DE (occurrence: DE)
  Receive Date: 20210809
  Receipt Date: 20210816
  Transmission Date: 20211014
  Serious: Yes (Hospitalization)
  Sender: FDA-Public Use
  Company Number: DE-JNJFOC-20210760919

PATIENT
  Age: 61 Year
  Sex: Male
  Weight: 88 kg

DRUGS (2)
  1. AMIVANTAMAB. [Suspect]
     Active Substance: AMIVANTAMAB
     Route: 042
     Dates: start: 20210803, end: 20210804
  2. AMIVANTAMAB. [Suspect]
     Active Substance: AMIVANTAMAB
     Indication: NON-SMALL CELL LUNG CANCER
     Route: 042
     Dates: start: 20210726, end: 20210727

REACTIONS (3)
  - Hypersensitivity [Recovered/Resolved]
  - Dermatitis allergic [Unknown]
  - Rash [Unknown]

NARRATIVE: CASE EVENT DATE: 20210726
